FAERS Safety Report 15026614 (Version 1)
Quarter: 2018Q2

REPORT INFORMATION
  Report Type: Spontaneous
  Country: AU (occurrence: AU)
  Receive Date: 20180618
  Receipt Date: 20180618
  Transmission Date: 20180711
  Serious: Yes (Other)
  Sender: FDA-Public Use
  Company Number: AU-AMGEN-AUSSP2018081309

PATIENT
  Age: 46 Year
  Sex: Male

DRUGS (12)
  1. XELODA [Concomitant]
     Active Substance: CAPECITABINE
     Indication: METASTASES TO LUNG
  2. FOLINIC ACID [Suspect]
     Active Substance: LEUCOVORIN
     Indication: COLORECTAL CANCER STAGE IV
     Dosage: UNK
     Route: 065
  3. IRINOTECAN [Suspect]
     Active Substance: IRINOTECAN
     Indication: COLORECTAL CANCER STAGE IV
     Dosage: UNK
     Route: 065
  4. VECTIBIX [Suspect]
     Active Substance: PANITUMUMAB
     Indication: METASTASES TO LUNG
     Dosage: UNK
     Route: 065
  5. FOLINIC ACID [Suspect]
     Active Substance: LEUCOVORIN
     Indication: METASTASES TO LUNG
     Dosage: UNK
     Route: 065
  6. 5 FU [Suspect]
     Active Substance: FLUOROURACIL
     Indication: COLORECTAL CANCER STAGE IV
     Dosage: UNK
     Route: 065
  7. VECTIBIX [Suspect]
     Active Substance: PANITUMUMAB
     Indication: COLORECTAL CANCER STAGE IV
     Dosage: UNK
     Route: 065
  8. AVASTIN [Concomitant]
     Active Substance: BEVACIZUMAB
     Indication: COLORECTAL CANCER STAGE IV
     Dosage: UNK
  9. AVASTIN [Concomitant]
     Active Substance: BEVACIZUMAB
     Indication: METASTASES TO LUNG
  10. 5 FU [Suspect]
     Active Substance: FLUOROURACIL
     Indication: METASTASES TO LUNG
     Dosage: UNK
     Route: 065
  11. XELODA [Concomitant]
     Active Substance: CAPECITABINE
     Indication: COLORECTAL CANCER STAGE IV
     Dosage: UNK
  12. IRINOTECAN [Suspect]
     Active Substance: IRINOTECAN
     Indication: METASTASES TO LUNG

REACTIONS (6)
  - Rash [Unknown]
  - Oedema peripheral [Unknown]
  - Eyelash changes [Unknown]
  - Malignant neoplasm progression [Not Recovered/Not Resolved]
  - Skin fissures [Unknown]
  - Fatigue [Unknown]
